FAERS Safety Report 23135910 (Version 2)
Quarter: 2024Q1

REPORT INFORMATION
  Report Type: Spontaneous
  Country: FI (occurrence: FI)
  Receive Date: 20231101
  Receipt Date: 20240104
  Transmission Date: 20240410
  Serious: Yes (Death)
  Sender: FDA-Public Use
  Company Number: None

PATIENT
  Age: 19 Year

DRUGS (2)
  1. ISOTRETINOIN [Suspect]
     Active Substance: ISOTRETINOIN
     Indication: Acne
     Route: 048
     Dates: start: 2022, end: 20230915
  2. ISOTRETINOIN [Suspect]
     Active Substance: ISOTRETINOIN
     Indication: Acne
     Dosage: DOSAGE TEXT: 30-40,MG,DAILY
     Route: 065
     Dates: start: 20221017, end: 20230915

REACTIONS (2)
  - Anxiety [Fatal]
  - Completed suicide [Fatal]

NARRATIVE: CASE EVENT DATE: 20230915
